FAERS Safety Report 12375894 (Version 1)
Quarter: 2016Q2

REPORT INFORMATION
  Report Type: Spontaneous
  Country: BE (occurrence: BE)
  Receive Date: 20160517
  Receipt Date: 20160517
  Transmission Date: 20160815
  Serious: Yes (Life-Threatening, Other)
  Sender: FDA-Public Use
  Company Number: BE-GLAXOSMITHKLINE-BE2016GSK036108

PATIENT
  Sex: Male
  Weight: 75 kg

DRUGS (4)
  1. L -THYROXINE [Concomitant]
     Dosage: 125 UNK, UNK
  2. L -THYROXINE [Concomitant]
     Indication: THYROIDECTOMY
     Dosage: 125 UG, QD
     Dates: start: 1998
  3. SERETIDE [Concomitant]
     Active Substance: FLUTICASONE PROPIONATE\SALMETEROL XINAFOATE
     Indication: PRODUCT USED FOR UNKNOWN INDICATION
     Dosage: UNK
     Dates: end: 201512
  4. RELVAR ELLIPTA [Suspect]
     Active Substance: FLUTICASONE FUROATE\VILANTEROL TRIFENATATE
     Indication: ASTHMA
     Dosage: UNK
     Route: 055
     Dates: start: 201511, end: 201512

REACTIONS (3)
  - Arrhythmia [Unknown]
  - Thyroxine increased [Unknown]
  - Ventricular extrasystoles [Recovered/Resolved]

NARRATIVE: CASE EVENT DATE: 2015
